FAERS Safety Report 12907288 (Version 1)
Quarter: 2016Q4

REPORT INFORMATION
  Report Type: Report from Study
  Country: BR (occurrence: BR)
  Receive Date: 20161103
  Receipt Date: 20161103
  Transmission Date: 20170207
  Serious: Yes (Death)
  Sender: FDA-Public Use
  Company Number: BR-EMD SERONO-8115795

PATIENT
  Sex: Female

DRUGS (1)
  1. REBIF [Suspect]
     Active Substance: INTERFERON BETA-1A
     Indication: MULTIPLE SCLEROSIS
     Dosage: FULL SYRINGE
     Route: 058
     Dates: start: 2006, end: 20160912

REACTIONS (2)
  - Death [Fatal]
  - Multiple sclerosis [Fatal]
